FAERS Safety Report 10451191 (Version 2)
Quarter: 2014Q4

REPORT INFORMATION
  Report Type: Spontaneous
  Country: US (occurrence: US)
  Receive Date: 20140912
  Receipt Date: 20141218
  Transmission Date: 20150528
  Serious: No
  Sender: FDA-Public Use
  Company Number: US-GALDERMA-US14002651

PATIENT
  Age: 56 Year
  Sex: Female

DRUGS (6)
  1. MIRVASO [Suspect]
     Active Substance: BRIMONIDINE TARTRATE
     Dosage: 0.33%
     Route: 061
     Dates: start: 20140615, end: 20140619
  2. MIRVASO [Suspect]
     Active Substance: BRIMONIDINE TARTRATE
     Indication: ROSACEA
     Dosage: 0.33%
     Route: 061
     Dates: start: 20140620, end: 20140708
  3. EUCERIN REDNESS RELIEF LOTION [Concomitant]
     Route: 061
  4. VITAMIN E [Concomitant]
     Active Substance: .ALPHA.-TOCOPHEROL
     Dosage: 800 IU
     Route: 048
  5. UNSPECIFIED MULTIVITAMIN [Concomitant]
     Route: 048
  6. CALTRATE 600 D3 [Concomitant]
     Route: 048

REACTIONS (5)
  - Product use issue [Recovered/Resolved]
  - Erythema [Recovered/Resolved]
  - Skin warm [Recovered/Resolved]
  - Skin burning sensation [Recovered/Resolved]
  - Vascular skin disorder [Recovered/Resolved]

NARRATIVE: CASE EVENT DATE: 20140620
